FAERS Safety Report 19846985 (Version 1)
Quarter: 2021Q3

REPORT INFORMATION
  Report Type: Spontaneous
  Country: US (occurrence: US)
  Receive Date: 20210917
  Receipt Date: 20210917
  Transmission Date: 20211014
  Serious: Yes (Hospitalization)
  Sender: FDA-Public Use
  Company Number: None

PATIENT
  Age: 84 Year
  Sex: Male
  Weight: 72.9 kg

DRUGS (16)
  1. METOPROLOL TARTRATE. [Concomitant]
     Active Substance: METOPROLOL TARTRATE
  2. ONDANSETRON [Concomitant]
     Active Substance: ONDANSETRON
  3. IMATINIB MESYLATE TABLETS [Suspect]
     Active Substance: IMATINIB MESYLATE
     Indication: CHRONIC MYELOID LEUKAEMIA
     Route: 048
     Dates: start: 20210810
  4. POTASSIUM CHLORIDE. [Concomitant]
     Active Substance: POTASSIUM CHLORIDE
  5. SPIRIVA [Concomitant]
     Active Substance: TIOTROPIUM BROMIDE MONOHYDRATE
  6. ATORVASTATIN [Concomitant]
     Active Substance: ATORVASTATIN
  7. TAMSULOSIN [Concomitant]
     Active Substance: TAMSULOSIN
  8. TRAMADOL. [Concomitant]
     Active Substance: TRAMADOL
  9. VOLTAREN [Concomitant]
     Active Substance: DICLOFENAC SODIUM
  10. CALCIUM CARBONATE. [Concomitant]
     Active Substance: CALCIUM CARBONATE
  11. SERTRALINE [Concomitant]
     Active Substance: SERTRALINE HYDROCHLORIDE
  12. WARFARIN [Concomitant]
     Active Substance: WARFARIN
  13. FUROSEMIDE. [Concomitant]
     Active Substance: FUROSEMIDE
  14. ATIVAN [Concomitant]
     Active Substance: LORAZEPAM
  15. IPRATROPIUM ALBUTEROL [Concomitant]
     Active Substance: ALBUTEROL\IPRATROPIUM
  16. ZOLPIDEM [Concomitant]
     Active Substance: ZOLPIDEM TARTRATE

REACTIONS (1)
  - Cardiac failure congestive [None]

NARRATIVE: CASE EVENT DATE: 20210906
